FAERS Safety Report 25916001 (Version 7)
Quarter: 2025Q4

REPORT INFORMATION
  Report Type: Report from Study
  Country: US (occurrence: US)
  Receive Date: 20251013
  Receipt Date: 20251222
  Transmission Date: 20260117
  Serious: Yes (Life-Threatening, Hospitalization, Disabling, Other)
  Sender: ABBVIE
  Company Number: US-ABBVIE-6500879

PATIENT
  Age: 62 Year
  Sex: Female
  Weight: 51.8 kg

DRUGS (25)
  1. QULIPTA [Suspect]
     Active Substance: ATOGEPANT
     Indication: Migraine without aura
     Route: 048
     Dates: start: 20250723
  2. WELLBUTRIN XL [Concomitant]
     Active Substance: BUPROPION HYDROCHLORIDE
     Indication: Anxiety
     Dates: start: 2022
  3. AMIODARONE [Concomitant]
     Active Substance: AMIODARONE
     Indication: Cardiac failure congestive
     Route: 048
     Dates: start: 202501
  4. AMIODARONE [Concomitant]
     Active Substance: AMIODARONE
     Indication: Cardiac failure congestive
     Route: 048
     Dates: start: 20250814, end: 20250829
  5. AMIODARONE [Concomitant]
     Active Substance: AMIODARONE
     Indication: Cardiac failure congestive
     Route: 048
     Dates: start: 20250829
  6. metoprolol succinacte [Concomitant]
     Indication: Cardiac failure congestive
     Route: 048
     Dates: start: 2019, end: 20250814
  7. metoprolol succinacte [Concomitant]
     Indication: Cardiac failure congestive
     Route: 048
     Dates: start: 20250814
  8. PANTOPRAZOLE [Concomitant]
     Active Substance: PANTOPRAZOLE
     Indication: Gastrooesophageal reflux disease
     Route: 048
     Dates: start: 2020
  9. MECLIZINE [Concomitant]
     Active Substance: MECLIZINE HYDROCHLORIDE
     Indication: Dizziness
     Dosage: TIME INTERVAL: AS NECESSARY
     Route: 048
     Dates: start: 2010
  10. NITROGLYCERIN [Concomitant]
     Active Substance: NITROGLYCERIN
     Indication: Cardiac failure congestive
     Dosage: TIME INTERVAL: AS NECESSARY: 1 PATCH
     Route: 062
     Dates: start: 2008
  11. SPIRONOLACTONE [Concomitant]
     Active Substance: SPIRONOLACTONE
     Indication: Hypertension
     Route: 048
     Dates: start: 2008
  12. exovac [Concomitant]
     Indication: Sjogren^s syndrome
     Dosage: TIME INTERVAL: 0.33333333 DAYS
     Route: 048
     Dates: start: 2010
  13. BENLYSTA [Concomitant]
     Active Substance: BELIMUMAB
     Indication: Systemic lupus erythematosus
     Dosage: 10 MG/KG
     Route: 042
     Dates: start: 2011
  14. LASIX [Concomitant]
     Active Substance: FUROSEMIDE
     Indication: Hypertension
     Route: 048
     Dates: start: 2010
  15. VITAMIN D [Concomitant]
     Active Substance: VITAMIN D NOS
     Indication: Vitamin supplementation
     Route: 048
     Dates: start: 2010
  16. AMBIEN [Concomitant]
     Active Substance: ZOLPIDEM TARTRATE
     Indication: Sleep disorder therapy
     Dosage: TIME INTERVAL: AS NECESSARY
     Route: 048
     Dates: start: 2015
  17. SCOPOLAMINE [Concomitant]
     Active Substance: SCOPOLAMINE
     Indication: Vertigo
     Route: 062
     Dates: start: 2009
  18. FARXIGA [Concomitant]
     Active Substance: DAPAGLIFLOZIN PROPANEDIOL
     Indication: Cardiac failure congestive
     Route: 048
     Dates: start: 2018
  19. NAPROXEN [Concomitant]
     Active Substance: NAPROXEN
     Indication: Headache
     Dosage: TIME INTERVAL: AS NECESSARY
     Route: 048
     Dates: start: 2015
  20. CAMBIA [Concomitant]
     Active Substance: DICLOFENAC POTASSIUM
     Indication: Migraine
     Dosage: TIME INTERVAL: AS NECESSARY
     Route: 048
     Dates: start: 2015
  21. TOPAMAX [Concomitant]
     Active Substance: TOPIRAMATE
     Indication: Migraine prophylaxis
     Dosage: EVERY MORNING
     Route: 048
     Dates: start: 2015
  22. TOPAMAX [Concomitant]
     Active Substance: TOPIRAMATE
     Indication: Migraine prophylaxis
     Dosage: EVERY NIGHT
     Route: 048
     Dates: start: 2015
  23. BUMETANIDE [Concomitant]
     Active Substance: BUMETANIDE
     Indication: Cardiac failure congestive
     Dates: start: 202507
  24. ELIQUIS [Concomitant]
     Active Substance: APIXABAN
     Indication: Pulmonary embolism
     Route: 048
     Dates: start: 202406
  25. ENTRESTO [Concomitant]
     Active Substance: SACUBITRIL\VALSARTAN
     Indication: Cardiac failure congestive
     Dosage: 49-51 MG
     Route: 048
     Dates: start: 2023

REACTIONS (6)
  - Condition aggravated [Recovered/Resolved with Sequelae]
  - Syncope [Recovered/Resolved with Sequelae]
  - Head injury [Recovered/Resolved]
  - Loss of consciousness [Recovered/Resolved]
  - Fall [Recovered/Resolved]
  - Ventricular tachycardia [Recovered/Resolved with Sequelae]

NARRATIVE: CASE EVENT DATE: 20250813
